FAERS Safety Report 6269138-0 (Version None)
Quarter: 2009Q3

REPORT INFORMATION
  Report Type: 
  Country: None (occurrence: None)
  Receive Date: 20090706
  Receipt Date: 20090622
  Transmission Date: 20100115
  Serious: Yes (Other)
  Sender: FDA-Public Use
  Company Number: OMX-2009-00011

PATIENT
  Age: 37 Year
  Sex: Female

DRUGS (1)
  1. QUIXIL (FACTOR I (FIBRINOGEN) [Suspect]
     Indication: HEPATECTOMY
     Dosage: PULVERISATION

REACTIONS (9)
  - ABDOMINAL PAIN [None]
  - AIR EMBOLISM [None]
  - CHOLESTASIS [None]
  - CIRCULATORY COLLAPSE [None]
  - HAEMODYNAMIC INSTABILITY [None]
  - MEDICAL DEVICE COMPLICATION [None]
  - OPERATIVE HAEMORRHAGE [None]
  - PO2 DECREASED [None]
  - SYSTEMIC INFLAMMATORY RESPONSE SYNDROME [None]
